FAERS Safety Report 5923420-2 (Version None)
Quarter: 2008Q4

REPORT INFORMATION
  Report Type: 
  Country: None (occurrence: None)
  Receive Date: 20081020
  Receipt Date: 20080918
  Transmission Date: 20090506
  Serious: No
  Sender: FDA-Public Use
  Company Number: US-BAYER-200834122NA

PATIENT
  Age: 39 Year
  Sex: Female
  Weight: 119 kg

DRUGS (8)
  1. OCELLA [Suspect]
     Indication: CONTRACEPTION
     Route: 048
     Dates: start: 20080801
  2. DICLOFENAC [Concomitant]
     Indication: PAIN
     Dosage: UNIT DOSE: 50 MG
  3. FLEXERIL [Concomitant]
     Indication: PAIN
     Dosage: UNIT DOSE: 10 MG
  4. LEVOTHROID [Concomitant]
     Indication: THYROID DISORDER
     Dosage: UNIT DOSE: 100 MG
  5. LIPITOR [Concomitant]
     Indication: THYROID DISORDER
     Dosage: UNIT DOSE: 40 MG
  6. MORPHINE SULFATE INJ [Concomitant]
     Indication: PAIN
     Dosage: UNIT DOSE: 60 MG
  7. PERCOCET [Concomitant]
     Indication: PAIN
  8. SEROQUEL [Concomitant]
     Indication: PAIN
     Dosage: UNIT DOSE: 100 MG

REACTIONS (1)
  - METRORRHAGIA [None]
